FAERS Safety Report 23706067 (Version 2)
Quarter: 2024Q3

REPORT INFORMATION
  Report Type: Report from Study
  Country: CA (occurrence: CA)
  Receive Date: 20240404
  Receipt Date: 20240830
  Transmission Date: 20241016
  Serious: Yes (Death)
  Sender: ACCORD
  Company Number: None

PATIENT
  Sex: Male

DRUGS (4)
  1. BICALUTAMIDE [Suspect]
     Active Substance: BICALUTAMIDE
     Indication: Product used for unknown indication
     Route: 065
  2. LEUPROLIDE ACETATE [Suspect]
     Active Substance: ISOPROPYL ALCOHOL\LEUPROLIDE ACETATE
     Indication: Prostate cancer
     Dosage: 1 EVERY 3 MONTHS
     Route: 065
  3. ELIGARD [Suspect]
     Active Substance: LEUPROLIDE ACETATE
     Indication: Prostate cancer
     Dosage: POWDER FOR SUSPENSION, SUSTAINEDRELEASE, 1 EVERY 3 MONTHS
  4. ELIGARD [Suspect]
     Active Substance: LEUPROLIDE ACETATE
     Indication: Prostate cancer
     Dosage: POWDER FOR SUSPENSION, SUSTAINEDRELEASE, 1 EVERY 3 MONTHS

REACTIONS (2)
  - Drug intolerance [Fatal]
  - Psoriatic arthropathy [Fatal]
